FAERS Safety Report 18221386 (Version 4)
Quarter: 2022Q2

REPORT INFORMATION
  Report Type: Spontaneous
  Country: US (occurrence: US)
  Receive Date: 20200902
  Receipt Date: 20220525
  Transmission Date: 20220720
  Serious: No
  Sender: FDA-Public Use
  Company Number: US-PFIZER INC-2020337944

PATIENT
  Age: 57 Year
  Sex: Male
  Weight: 82.1 kg

DRUGS (1)
  1. TOVIAZ [Suspect]
     Active Substance: FESOTERODINE FUMARATE
     Indication: Hypertonic bladder
     Dosage: 8 MG, 1X/DAY
     Route: 048

REACTIONS (3)
  - Headache [Unknown]
  - Product dose omission issue [Unknown]
  - Malaise [Unknown]
